FAERS Safety Report 20165363 (Version 1)
Quarter: 2021Q4

REPORT INFORMATION
  Report Type: Spontaneous
  Country: CN (occurrence: None)
  Receive Date: 20211209
  Receipt Date: 20211209
  Transmission Date: 20220303
  Serious: Yes (Other)
  Sender: FDA-Public Use
  Company Number: 2021A854931

PATIENT
  Age: 18263 Day
  Sex: Male
  Weight: 70 kg

DRUGS (1)
  1. ROSUVASTATIN CALCIUM [Suspect]
     Active Substance: ROSUVASTATIN CALCIUM
     Indication: Cardiovascular event prophylaxis
     Route: 048
     Dates: start: 20210923, end: 20211018

REACTIONS (1)
  - Liver injury [Unknown]

NARRATIVE: CASE EVENT DATE: 20211016
